FAERS Safety Report 9371256 (Version 2)
Quarter: 2013Q3

REPORT INFORMATION
  Report Type: Spontaneous
  Country: US (occurrence: US)
  Receive Date: 20130627
  Receipt Date: 20130724
  Transmission Date: 20140515
  Serious: Yes (Hospitalization)
  Sender: FDA-Public Use
  Company Number: US-BIOGENIDEC-2013BI056270

PATIENT
  Age: 59 Year
  Sex: Female

DRUGS (29)
  1. TYSABRI [Suspect]
     Indication: MULTIPLE SCLEROSIS
     Route: 042
  2. TYSABRI [Suspect]
     Indication: MULTIPLE SCLEROSIS
     Route: 042
     Dates: start: 20101102
  3. AVONEX [Concomitant]
     Indication: MULTIPLE SCLEROSIS
     Route: 030
     Dates: start: 20040930
  4. ACETAMINOPHEN [Concomitant]
     Route: 048
  5. TRAMADOL [Concomitant]
     Route: 048
  6. NEXIUM [Concomitant]
     Route: 048
  7. CYCLOBENZAPRINE [Concomitant]
     Route: 048
  8. CALCITONIN SALMON [Concomitant]
     Route: 045
  9. CYMBALTA [Concomitant]
     Route: 048
  10. MELOXICAM [Concomitant]
     Route: 048
  11. PROVIGIL [Concomitant]
     Route: 048
  12. FENTANYL PATCH [Concomitant]
     Route: 062
  13. BISACODYL [Concomitant]
     Route: 054
  14. LIDOCAINE PATCH [Concomitant]
     Route: 062
  15. CARBIDOPA-LEVODOPA [Concomitant]
     Route: 048
  16. CARBIDOPA-LEVODOPA [Concomitant]
     Route: 048
  17. ZOLPIDEM [Concomitant]
     Route: 048
  18. CITALOPRAM [Concomitant]
     Route: 048
  19. BENADRYL [Concomitant]
     Indication: PROPHYLAXIS
     Route: 042
  20. POTASSIUM CHLORIDE [Concomitant]
     Route: 048
  21. FUROSEMIDE [Concomitant]
     Route: 048
  22. SIMVASTATIN [Concomitant]
     Route: 048
  23. AMANTADINE HYDROCHLORIDE [Concomitant]
     Route: 048
  24. CELEBREX [Concomitant]
     Route: 048
  25. CYANOCOBALAMIN [Concomitant]
     Route: 048
  26. NEURONTIN [Concomitant]
     Route: 048
  27. SPIRONOLACTONE [Concomitant]
     Route: 048
  28. PREDNISONE [Concomitant]
     Route: 048
  29. CHOLECALCIFEROL [Concomitant]
     Route: 048

REACTIONS (3)
  - Urinary tract infection [Unknown]
  - Renal failure acute [Unknown]
  - Muscle spasms [Unknown]
